FAERS Safety Report 20890862 (Version 1)
Quarter: 2022Q2

REPORT INFORMATION
  Report Type: Report from Study
  Country: US (occurrence: US)
  Receive Date: 20220530
  Receipt Date: 20220530
  Transmission Date: 20220721
  Serious: Yes (Other)
  Sender: FDA-Public Use
  Company Number: US-JNJFOC-20220312125

PATIENT
  Age: 68 Year
  Sex: Female
  Weight: 72.640 kg

DRUGS (13)
  1. SPRAVATO [Suspect]
     Active Substance: ESKETAMINE
     Indication: Depression
     Dosage: 56 MG, 2 TOTAL DOSES
     Dates: start: 20191217, end: 20191219
  2. SPRAVATO [Suspect]
     Active Substance: ESKETAMINE
     Indication: Major depression
     Dosage: 84MG, 48 TOTAL DOSES
     Dates: start: 20191223, end: 20201130
  3. SPRAVATO [Suspect]
     Active Substance: ESKETAMINE
     Dosage: 70 MG, 1 TOTAL DOSES
     Dates: start: 20201207, end: 20201207
  4. SPRAVATO [Suspect]
     Active Substance: ESKETAMINE
     Dosage: 84 MG, 49 TOTAL DOSES
     Dates: start: 20201214, end: 20211229
  5. SPRAVATO [Suspect]
     Active Substance: ESKETAMINE
     Dosage: 84 MG,  1 TOTAL DOSES
     Dates: end: 202201
  6. CYMBALTA [Concomitant]
     Active Substance: DULOXETINE HYDROCHLORIDE
     Indication: Major depression
     Dates: start: 2017
  7. VYVANSE [Concomitant]
     Active Substance: LISDEXAMFETAMINE DIMESYLATE
     Indication: Attention deficit hyperactivity disorder
     Dates: start: 2017
  8. AMBIEN [Concomitant]
     Active Substance: ZOLPIDEM TARTRATE
     Indication: Insomnia
     Dates: start: 2017
  9. ACYCLOVIR [Concomitant]
     Active Substance: ACYCLOVIR
  10. ATENOLOL [Concomitant]
     Active Substance: ATENOLOL
  11. ESTRADIOL [Concomitant]
     Active Substance: ESTRADIOL
  12. LEVOTHYROXINE [Concomitant]
     Active Substance: LEVOTHYROXINE
  13. METHOCARBAMOL [Concomitant]
     Active Substance: METHOCARBAMOL

REACTIONS (3)
  - Acute kidney injury [Recovered/Resolved]
  - Dehydration [Recovered/Resolved]
  - Multi-vitamin deficiency [Recovered/Resolved]

NARRATIVE: CASE EVENT DATE: 20220117
